FAERS Safety Report 13361840 (Version 1)
Quarter: 2017Q1

REPORT INFORMATION
  Report Type: Report from Study
  Country: FR (occurrence: FR)
  Receive Date: 20170323
  Receipt Date: 20170323
  Transmission Date: 20170429
  Serious: Yes (Hospitalization)
  Sender: FDA-Public Use
  Company Number: FR-ROCHE-1797550

PATIENT
  Sex: Female
  Weight: 48 kg

DRUGS (13)
  1. TENORMIN [Concomitant]
     Active Substance: ATENOLOL
     Indication: ATRIAL FIBRILLATION
  2. XANAX [Concomitant]
     Active Substance: ALPRAZOLAM
     Dosage: 0.25 MG 1 DF IN THE EVENING,
     Route: 065
  3. RELPAX [Concomitant]
     Active Substance: ELETRIPTAN HYDROBROMIDE
     Dosage: IF MIGRAINE OCCURRED
     Route: 065
  4. SOLUPRED (EGYPT) [Concomitant]
     Active Substance: PREDNISOLONE
     Dosage: 20MG 1DF DAILY.
     Route: 065
     Dates: start: 20160711
  5. PRAVASTATIN. [Concomitant]
     Active Substance: PRAVASTATIN
     Dosage: 10 MG 0.5 DF IN THE EVENING,
     Route: 065
  6. ELISOR [Concomitant]
     Active Substance: PRAVASTATIN SODIUM
     Indication: HYPERCHOLESTEROLAEMIA
     Route: 048
     Dates: start: 2014
  7. TENORMIN [Concomitant]
     Active Substance: ATENOLOL
     Indication: HYPERTENSION
     Dosage: 50 MG IN THE MORNING AND IN THE EVENING,
     Route: 048
     Dates: start: 20160630
  8. AMLOR [Concomitant]
     Active Substance: AMLODIPINE BESYLATE
     Indication: HYPERTENSION
     Route: 048
     Dates: start: 2014
  9. XARELTO [Concomitant]
     Active Substance: RIVAROXABAN
     Dosage: 10 MG 1DF IN THE EVENING,
     Route: 065
  10. DEROXAT [Concomitant]
     Active Substance: PAROXETINE HYDROCHLORIDE
     Indication: DEPRESSION
     Route: 065
     Dates: start: 2016
  11. PAROXETINE. [Concomitant]
     Active Substance: PAROXETINE
     Dosage: 20 MG 1DF IN THE MORNING,
     Route: 065
  12. VEMURAFENIB [Suspect]
     Active Substance: VEMURAFENIB
     Indication: BRAF GENE MUTATION
     Dosage: 240 MG 4DF IN THE MORNING AND IN THE EVENING
     Route: 048
     Dates: start: 20160701, end: 20160711
  13. SOLUPRED (EGYPT) [Concomitant]
     Active Substance: PREDNISOLONE
     Dosage: 20 MG FOR 2 DAYS THEN 10 MG FOR 3 DAYS THEN 5MG FOR 3 DAYS, THEN DISCONTINUATION.
     Route: 065

REACTIONS (3)
  - Pruritus [Recovered/Resolved]
  - Rash macular [Recovered/Resolved with Sequelae]
  - Enanthema [Recovered/Resolved]

NARRATIVE: CASE EVENT DATE: 20160708
